FAERS Safety Report 22639997 (Version 1)
Quarter: 2023Q2

REPORT INFORMATION
  Report Type: Spontaneous
  Country: HU (occurrence: HU)
  Receive Date: 20230626
  Receipt Date: 20230626
  Transmission Date: 20230721
  Serious: Yes (Other)
  Sender: FDA-Public Use
  Company Number: HU-002147023-NVSC2023HU142270

PATIENT

DRUGS (1)
  1. GILENYA [Suspect]
     Active Substance: FINGOLIMOD HYDROCHLORIDE
     Indication: Product used for unknown indication
     Dosage: UNK
     Route: 065
     Dates: start: 20230613

REACTIONS (4)
  - Diarrhoea haemorrhagic [Unknown]
  - Malaise [Unknown]
  - Abdominal pain [Unknown]
  - Vomiting [Unknown]

NARRATIVE: CASE EVENT DATE: 20230615
